FAERS Safety Report 11169483 (Version 1)
Quarter: 2015Q2

REPORT INFORMATION
  Report Type: Spontaneous
  Country: US (occurrence: US)
  Receive Date: 20150605
  Receipt Date: 20150605
  Transmission Date: 20150821
  Serious: Yes (Life-Threatening, Hospitalization, Other)
  Sender: FDA-Public Use
  Company Number: US-ASTRAZENECA-2015SE53530

PATIENT
  Sex: Female

DRUGS (13)
  1. SEROQUEL [Suspect]
     Active Substance: QUETIAPINE FUMARATE
     Indication: INSOMNIA
     Route: 048
  2. LATUDA [Suspect]
     Active Substance: LURASIDONE HYDROCHLORIDE
     Indication: MAJOR DEPRESSION
     Route: 048
     Dates: start: 20141228, end: 201501
  3. VALIUM [Concomitant]
     Active Substance: DIAZEPAM
  4. INDERAL [Suspect]
     Active Substance: PROPRANOLOL HYDROCHLORIDE
     Indication: TREMOR
     Route: 048
  5. LATUDA [Suspect]
     Active Substance: LURASIDONE HYDROCHLORIDE
     Indication: BIPOLAR II DISORDER
     Route: 048
     Dates: start: 20150228, end: 201504
  6. TRAZODONE [Concomitant]
     Active Substance: TRAZODONE HYDROCHLORIDE
     Indication: SLEEP DISORDER
  7. LATUDA [Suspect]
     Active Substance: LURASIDONE HYDROCHLORIDE
     Indication: BIPOLAR II DISORDER
     Route: 048
     Dates: start: 20141228, end: 201501
  8. LATUDA [Suspect]
     Active Substance: LURASIDONE HYDROCHLORIDE
     Indication: BIPOLAR II DISORDER
     Route: 048
     Dates: start: 201501, end: 2015
  9. LAMICTAL [Concomitant]
     Active Substance: LAMOTRIGINE
  10. TEGRETOL [Concomitant]
     Active Substance: CARBAMAZEPINE
     Indication: AFFECTIVE DISORDER
  11. LATUDA [Suspect]
     Active Substance: LURASIDONE HYDROCHLORIDE
     Indication: MAJOR DEPRESSION
     Route: 048
     Dates: start: 201501, end: 2015
  12. LATUDA [Suspect]
     Active Substance: LURASIDONE HYDROCHLORIDE
     Indication: MAJOR DEPRESSION
     Route: 048
     Dates: start: 20150228, end: 201504
  13. AMBIEN [Concomitant]
     Active Substance: ZOLPIDEM TARTRATE
     Indication: SLEEP DISORDER

REACTIONS (6)
  - Depression [Unknown]
  - Irritability [Recovering/Resolving]
  - Suicide attempt [Unknown]
  - Bipolar II disorder [Unknown]
  - Suicidal ideation [Unknown]
  - Major depression [Unknown]

NARRATIVE: CASE EVENT DATE: 2014
